FAERS Safety Report 5477484-3 (Version None)
Quarter: 2007Q4

REPORT INFORMATION
  Report Type: 
  Country: None (occurrence: None)
  Receive Date: 20071001
  Receipt Date: 20070925
  Transmission Date: 20080405
  Serious: Yes (Life-Threatening, Hospitalization)
  Sender: FDA-Public Use
  Company Number: 2007SP018896

PATIENT
  Sex: Male
  Weight: 84 kg

DRUGS (5)
  1. TEMODAL [Suspect]
     Indication: GLIOBLASTOMA
     Dosage: 75 MG/M2; QD;, 380 MG; QD; PO, 380 MG; QD; PO
     Dates: end: 20070305
  2. TEMODAL [Suspect]
     Indication: GLIOBLASTOMA
     Dosage: 75 MG/M2; QD;, 380 MG; QD; PO, 380 MG; QD; PO
     Dates: start: 20070502, end: 20070507
  3. TEMODAL [Suspect]
     Indication: GLIOBLASTOMA
     Dosage: 75 MG/M2; QD;, 380 MG; QD; PO, 380 MG; QD; PO
     Dates: start: 20070601, end: 20070605
  4. CATAPRESSAN /00171101/ [Concomitant]
  5. SOLU-MEDROL [Concomitant]

REACTIONS (8)
  - AGGRESSION [None]
  - DEPRESSION [None]
  - FALL [None]
  - INTENTIONAL SELF-INJURY [None]
  - LUMBAR VERTEBRAL FRACTURE [None]
  - MULTIPLE FRACTURES [None]
  - SUICIDE ATTEMPT [None]
  - THROMBOCYTOPENIA [None]
